FAERS Safety Report 12887005 (Version 1)
Quarter: 2016Q4

REPORT INFORMATION
  Report Type: Spontaneous
  Country: US (occurrence: US)
  Receive Date: 20161026
  Receipt Date: 20161026
  Transmission Date: 20170207
  Serious: No
  Sender: FDA-Public Use
  Company Number: US-PERRIGO-15US009759

PATIENT
  Age: 26 Year
  Sex: Male
  Weight: 63.49 kg

DRUGS (1)
  1. NICOTINE POLACRILEX [Suspect]
     Active Substance: NICOTINE
     Indication: SMOKING CESSATION THERAPY
     Dosage: 4 MG, SINGLE
     Route: 002
     Dates: start: 20150917, end: 20150917

REACTIONS (3)
  - Hiccups [Recovered/Resolved]
  - Dyspnoea [Recovered/Resolved]
  - Throat tightness [Recovered/Resolved]

NARRATIVE: CASE EVENT DATE: 20150917
